FAERS Safety Report 18952551 (Version 2)
Quarter: 2021Q1

REPORT INFORMATION
  Report Type: Spontaneous
  Country: US (occurrence: US)
  Receive Date: 20210301
  Receipt Date: 20210331
  Transmission Date: 20210420
  Serious: Yes (Other)
  Sender: FDA-Public Use
  Company Number: NVSC2021US044605

PATIENT
  Sex: Male

DRUGS (4)
  1. VENLAFAXINE [Suspect]
     Active Substance: VENLAFAXINE HYDROCHLORIDE
     Indication: FOETAL EXPOSURE DURING PREGNANCY
     Dosage: MATERNAL DOSE: 150 MG, QD
     Route: 064
  2. QUETIAPINE. [Suspect]
     Active Substance: QUETIAPINE
     Indication: FOETAL EXPOSURE DURING PREGNANCY
     Dosage: MATERNAL DOSE: 200 MG, QD
     Route: 064
  3. GABAPENTIN. [Suspect]
     Active Substance: GABAPENTIN
     Indication: FOETAL EXPOSURE DURING PREGNANCY
     Dosage: MATERNAL DOSE: 1200 MG, TID
     Route: 064
  4. BUPROPION HYDROCHLORIDE. [Suspect]
     Active Substance: BUPROPION HYDROCHLORIDE
     Indication: FOETAL EXPOSURE DURING PREGNANCY
     Dosage: MATRENAL DOSE: 300 MG, QD
     Route: 064

REACTIONS (6)
  - Dyskinesia [Recovering/Resolving]
  - Hypotonia neonatal [Recovering/Resolving]
  - Hyperreflexia [Recovering/Resolving]
  - Encephalopathy neonatal [Recovering/Resolving]
  - Foetal exposure during pregnancy [Unknown]
  - Premature baby [Unknown]
